FAERS Safety Report 8343151 (Version 3)
Quarter: 2013Q1

REPORT INFORMATION
  Report Type: Spontaneous
  Country: DE (occurrence: DE)
  Receive Date: 20120119
  Receipt Date: 20130108
  Transmission Date: 20140127
  Serious: Yes (Other)
  Sender: FDA-Public Use
  Company Number: PHHY2009DE67747

PATIENT
  Age: 45 None
  Sex: Female
  Weight: 69 kg

DRUGS (7)
  1. EXTAVIA [Suspect]
     Indication: MULTIPLE SCLEROSIS
     Dosage: 250 UG, QOD (250 UG EVERY OTHER DAY)
     Route: 058
     Dates: start: 20090401
  2. EXTAVIA [Suspect]
     Dosage: 0.75 ML, UNK
     Dates: start: 200905
  3. EXTAVIA [Suspect]
     Dosage: 250 UG/ML, QOD
     Route: 058
  4. AMANTADIN [Concomitant]
     Indication: FATIGUE
     Dosage: 150 MG, DAILY
     Route: 048
  5. LYRICA [Concomitant]
     Indication: TRIGEMINAL NEURALGIA
     Dosage: 75 MG, BID
     Route: 048
  6. CITALOPRAM [Concomitant]
     Indication: DEPRESSION
     Dosage: 20 MG, DAILY
     Route: 048
  7. JODETTEN [Concomitant]
     Indication: THYROID DISORDER
     Dosage: 100 UG DAILY
     Route: 048

REACTIONS (17)
  - Trigeminal neuralgia [Recovered/Resolved]
  - Fatigue [Recovered/Resolved]
  - Concomitant disease aggravated [Recovered/Resolved]
  - Lymphoedema [Not Recovered/Not Resolved]
  - Hypertension [Recovering/Resolving]
  - Multiple sclerosis relapse [Unknown]
  - Muscle spasticity [Recovering/Resolving]
  - Listless [Recovered/Resolved with Sequelae]
  - Oral disorder [Unknown]
  - Heart rate increased [Unknown]
  - Hypersensitivity [Unknown]
  - Skin discolouration [Unknown]
  - Injection site bruising [Unknown]
  - Injection site pruritus [Unknown]
  - Influenza like illness [Unknown]
  - Body temperature increased [Unknown]
  - Headache [Recovered/Resolved]
